FAERS Safety Report 8416476-9 (Version None)
Quarter: 2012Q2

REPORT INFORMATION
  Report Type: 
  Country: None (occurrence: None)
  Receive Date: 20120606
  Receipt Date: 20120528
  Transmission Date: 20120825
  Serious: Yes (Hospitalization)
  Sender: FDA-Public Use
  Company Number: SE-JNJFOC-20120521368

PATIENT
  Age: 70 Year
  Sex: Male

DRUGS (4)
  1. OTHER THERAPEUTIC PRODUCT [Concomitant]
     Route: 065
     Dates: start: 20010710, end: 20020117
  2. REMICADE [Suspect]
     Indication: RHEUMATOID ARTHRITIS
     Route: 042
     Dates: start: 20100126
  3. PREDNISOLONE [Concomitant]
     Route: 065
     Dates: start: 20010710
  4. METHOTREXATE [Concomitant]
     Route: 065
     Dates: start: 20020117, end: 20090803

REACTIONS (1)
  - OBSTRUCTIVE AIRWAYS DISORDER [None]
